FAERS Safety Report 8587135-7 (Version None)
Quarter: 2012Q3

REPORT INFORMATION
  Report Type: 
  Country: None (occurrence: None)
  Receive Date: 20120810
  Receipt Date: 20120806
  Transmission Date: 20120928
  Serious: No
  Sender: FDA-Public Use
  Company Number: US-TEVA-352832USA

PATIENT
  Sex: Female
  Weight: 58.112 kg

DRUGS (2)
  1. PLAN B ONE-STEP [Suspect]
     Dosage: 1.5 MILLIGRAM DAILY;
     Route: 048
     Dates: start: 20120729, end: 20120729
  2. PLAN B ONE-STEP [Suspect]
     Indication: POST COITAL CONTRACEPTION
     Dosage: 1.5 MILLIGRAM DAILY;
     Route: 048
     Dates: start: 20120729, end: 20120729

REACTIONS (6)
  - BREAST TENDERNESS [None]
  - INTENTIONAL OVERDOSE [None]
  - PELVIC PAIN [None]
  - FEELING ABNORMAL [None]
  - DIZZINESS [None]
  - POLLAKIURIA [None]
